FAERS Safety Report 25092167 (Version 1)
Quarter: 2025Q1

REPORT INFORMATION
  Report Type: Spontaneous
  Country: JP (occurrence: JP)
  Receive Date: 20250319
  Receipt Date: 20250319
  Transmission Date: 20250409
  Serious: Yes (Hospitalization, Other)
  Sender: GLAXOSMITHKLINE
  Company Number: JP-GSK-JP2025JPN029917

PATIENT

DRUGS (7)
  1. VALACYCLOVIR HYDROCHLORIDE [Suspect]
     Active Substance: VALACYCLOVIR HYDROCHLORIDE
     Indication: Herpes zoster
     Dosage: 1000 MG, TID
     Route: 048
     Dates: start: 202307
  2. TELMISARTAN [Suspect]
     Active Substance: TELMISARTAN
     Indication: Hypertension
     Dosage: 40 MG, 1D
     Route: 048
     Dates: start: 202307
  3. AMLODIPINE [Suspect]
     Active Substance: AMLODIPINE BESYLATE
  4. LANSOPRAZOLE [Concomitant]
     Active Substance: LANSOPRAZOLE
  5. CANDESARTAN [Concomitant]
     Active Substance: CANDESARTAN
  6. BENIDIPINE [Concomitant]
     Active Substance: BENIDIPINE
  7. HYALURONATE SODIUM [Concomitant]
     Active Substance: HYALURONATE SODIUM

REACTIONS (14)
  - Nephropathy toxic [Recovered/Resolved]
  - Acute kidney injury [Recovered/Resolved]
  - Pyelocaliectasis [Unknown]
  - Renal impairment [Unknown]
  - Abdominal pain upper [Unknown]
  - Hypophagia [Unknown]
  - Fluid intake reduced [Unknown]
  - Dehydration [Unknown]
  - Abdominal pain upper [Unknown]
  - Nausea [Unknown]
  - Gastrooesophageal reflux disease [Unknown]
  - Chronic gastritis [Unknown]
  - Ectopic gastric mucosa [Unknown]
  - Renal hypertrophy [Unknown]
